FAERS Safety Report 6292453-1 (Version None)
Quarter: 2009Q3

REPORT INFORMATION
  Report Type: 
  Country: None (occurrence: None)
  Receive Date: 20090730
  Receipt Date: 20090730
  Transmission Date: 20100115
  Serious: Yes (Other)
  Sender: FDA-Public Use
  Company Number: None

PATIENT
  Sex: Female
  Weight: 100.6985 kg

DRUGS (2)
  1. OMEPRAZOLE [Suspect]
     Indication: GASTRIC BYPASS
     Dosage: 20MG QD PO
     Route: 048
     Dates: start: 20080226
  2. OMEPRAZOLE [Suspect]
     Indication: GASTROOESOPHAGEAL REFLUX DISEASE
     Dosage: 20MG QD PO
     Route: 048
     Dates: start: 20080226

REACTIONS (1)
  - ALOPECIA [None]
